FAERS Safety Report 9957219 (Version 1)
Quarter: 2014Q1

REPORT INFORMATION
  Report Type: Report from Study
  Country: US (occurrence: US)
  Receive Date: 20140304
  Receipt Date: 20140304
  Transmission Date: 20141002
  Serious: No
  Sender: FDA-Public Use
  Company Number: US-ABBVIE-13P-163-1096592-00

PATIENT
  Age: 56 Year
  Sex: Female
  Weight: 98.06 kg

DRUGS (6)
  1. HUMIRA [Suspect]
     Indication: PSORIASIS
     Route: 058
     Dates: start: 201212, end: 201212
  2. HUMIRA [Suspect]
     Route: 058
     Dates: start: 201212, end: 201303
  3. UNKNOWN MEDICATION [Concomitant]
     Indication: HYPERTENSION
  4. LEVOTHYROXINE [Concomitant]
     Indication: HYPOTHYROIDISM
  5. NEXIUM [Concomitant]
     Indication: PROPHYLAXIS
  6. UNKNOWN STATIN [Concomitant]
     Indication: HYPERCHOLESTEROLAEMIA

REACTIONS (1)
  - Rash generalised [Recovered/Resolved]
